FAERS Safety Report 6786501-X (Version None)
Quarter: 2010Q2

REPORT INFORMATION
  Report Type: 
  Country: None (occurrence: None)
  Receive Date: 20100623
  Receipt Date: 20100616
  Transmission Date: 20101027
  Serious: Yes (Other)
  Sender: FDA-Public Use
  Company Number: B0661256A

PATIENT
  Age: 66 Year
  Sex: Male

DRUGS (1)
  1. VALTREX [Suspect]
     Indication: ORAL HERPES
     Dosage: 2IUAX PER DAY
     Route: 048
     Dates: start: 20100614

REACTIONS (1)
  - DELIRIUM [None]
